FAERS Safety Report 24387183 (Version 1)
Quarter: 2024Q4

REPORT INFORMATION
  Report Type: Spontaneous
  Country: US (occurrence: US)
  Receive Date: 20241002
  Receipt Date: 20241002
  Transmission Date: 20250115
  Serious: No
  Sender: QOL
  Company Number: US-QOL Medical, LLC-2162345

PATIENT
  Age: 54 Year
  Sex: Female

DRUGS (1)
  1. SUCRAID [Suspect]
     Active Substance: SACROSIDASE
     Dates: start: 20230824

REACTIONS (2)
  - Fungal infection [Unknown]
  - Urethritis noninfective [Unknown]

NARRATIVE: CASE EVENT DATE: 20230826
